FAERS Safety Report 5088551-0 (Version None)
Quarter: 2006Q3

REPORT INFORMATION
  Report Type: 
  Country: None (occurrence: None)
  Receive Date: 20060728
  Receipt Date: 20060621
  Transmission Date: 20061208
  Serious: Yes (Hospitalization)
  Sender: FDA-Public Use
  Company Number: CLOF-10258

PATIENT
  Age: 69 Year
  Sex: Female

DRUGS (7)
  1. CLOFARABINE [Suspect]
     Indication: ACUTE MYELOID LEUKAEMIA
     Dosage: 50 MG QD X 3 IV
     Route: 042
     Dates: start: 20051025, end: 20051030
  2. LEVAQUIN [Concomitant]
  3. SPORANOX [Concomitant]
  4. VALTREX [Concomitant]
  5. ZOLOFT [Concomitant]
  6. ALLEGRA [Concomitant]
  7. XANAX [Concomitant]

REACTIONS (2)
  - FEBRILE NEUTROPENIA [None]
  - PYREXIA [None]
